FAERS Safety Report 5479405-6 (Version None)
Quarter: 2007Q4

REPORT INFORMATION
  Report Type: 
  Country: None (occurrence: None)
  Receive Date: 20071008
  Receipt Date: 20071004
  Transmission Date: 20080405
  Serious: Yes (Hospitalization, Other)
  Sender: FDA-Public Use
  Company Number: US-AMGEN-US155679

PATIENT
  Sex: Male
  Weight: 50.4 kg

DRUGS (14)
  1. EPOGEN [Suspect]
     Indication: DIALYSIS
     Route: 058
     Dates: start: 20030324, end: 20051101
  2. ARANESP [Suspect]
     Indication: DIALYSIS
     Route: 058
     Dates: start: 20050511, end: 20050511
  3. PROCRIT [Suspect]
     Indication: DIALYSIS
     Route: 058
     Dates: start: 20050804, end: 20050804
  4. AMIODARONE [Concomitant]
     Route: 048
     Dates: start: 20051231
  5. SENSIPAR [Concomitant]
     Indication: HYPERPARATHYROIDISM SECONDARY
     Dates: start: 20050401, end: 20050801
  6. IRBESARTAN [Concomitant]
     Route: 048
     Dates: start: 20060222
  7. METOPROLOL TARTRATE [Concomitant]
     Route: 048
  8. PANTOPRAZOLE SODIUM [Concomitant]
  9. QUINAPRIL HCL [Concomitant]
  10. FOSRENOL [Concomitant]
     Dates: start: 20050819
  11. MINOXIDIL [Concomitant]
  12. RENAGEL [Concomitant]
     Dates: start: 20060105
  13. IMDUR [Concomitant]
     Route: 048
     Dates: start: 20060209
  14. ZEMPLAR [Concomitant]
     Route: 042

REACTIONS (8)
  - ANAEMIA [None]
  - ANTI-ERYTHROPOIETIN ANTIBODY POSITIVE [None]
  - APLASIA PURE RED CELL [None]
  - AZOTAEMIA [None]
  - BRADYCARDIA [None]
  - HYPERKALAEMIA [None]
  - PERICARDIAL EFFUSION [None]
  - THROMBOCYTOPENIA [None]
